FAERS Safety Report 8878976 (Version 1)
Quarter: 2012Q4

REPORT INFORMATION
  Report Type: 
  Country: FR (occurrence: FR)
  Receive Date: 20121026
  Receipt Date: 20121026
  Transmission Date: 20130627
  Serious: Yes (Hospitalization, Other)
  Sender: FDA-Public Use
  Company Number: FR-BRISTOL-MYERS SQUIBB COMPANY-17050964

PATIENT
  Age: 77 Year
  Sex: Male

DRUGS (8)
  1. SKENAN [Suspect]
     Dosage: Skenan E.R. 30 mg
     Route: 048
     Dates: start: 20120915, end: 20120922
  2. ACTISKENAN [Suspect]
     Route: 048
  3. ELISOR [Suspect]
  4. ALPRAZOLAM [Suspect]
  5. ZOLPIDEM [Suspect]
  6. MIANSERIN [Concomitant]
  7. REQUIP [Concomitant]
  8. MODOPAR [Concomitant]

REACTIONS (4)
  - Confusional state [Recovered/Resolved]
  - Somnolence [Recovered/Resolved]
  - Rhabdomyolysis [Recovered/Resolved]
  - Fall [Recovered/Resolved]
